FAERS Safety Report 5963647-7 (Version None)
Quarter: 2008Q4

REPORT INFORMATION
  Report Type: 
  Country: None (occurrence: None)
  Receive Date: 20081124
  Receipt Date: 20081113
  Transmission Date: 20090506
  Serious: Yes (Hospitalization)
  Sender: FDA-Public Use
  Company Number: CH-AVENTIS-200820763GDDC

PATIENT
  Age: 67 Year
  Sex: Male

DRUGS (2)
  1. METRONIDAZOLE [Suspect]
     Route: 048
     Dates: start: 20070622, end: 20070627
  2. CIPROXIN                           /00697201/ [Suspect]
     Route: 048
     Dates: start: 20070622, end: 20070627

REACTIONS (1)
  - DERMATITIS EXFOLIATIVE [None]
